FAERS Safety Report 23556559 (Version 1)
Quarter: 2024Q1

REPORT INFORMATION
  Report Type: Report from Study
  Country: US (occurrence: US)
  Receive Date: 20240223
  Receipt Date: 20240223
  Transmission Date: 20240409
  Serious: Yes (Hospitalization, Other)
  Sender: FDA-Public Use
  Company Number: US-ABBVIE-5650158

PATIENT
  Sex: Male

DRUGS (1)
  1. VENCLEXTA [Suspect]
     Active Substance: VENETOCLAX
     Indication: Acute myeloid leukaemia
     Route: 048
     Dates: start: 20230509

REACTIONS (5)
  - Metastases to eye [Unknown]
  - Pneumonia [Unknown]
  - Haemoglobin abnormal [Unknown]
  - Inappropriate schedule of product administration [Unknown]
  - Infection [Unknown]
